FAERS Safety Report 7709776-9 (Version None)
Quarter: 2011Q3

REPORT INFORMATION
  Report Type: 
  Country: None (occurrence: None)
  Receive Date: 20110819
  Receipt Date: 20110721
  Transmission Date: 20111222
  Serious: Yes (Other)
  Sender: FDA-Public Use
  Company Number: 2011165762

PATIENT
  Age: 36 Year
  Sex: Male

DRUGS (3)
  1. CYTARABINE [Suspect]
     Indication: ACUTE MYELOID LEUKAEMIA
     Dosage: 3380 MG, 1X/DAY, INTRAVENOUS
     Route: 042
     Dates: start: 20080124, end: 20080130
  2. DAUNORUBICIN HYDROCHLORIDE [Suspect]
     Indication: ACUTE MYELOID LEUKAEMIA
     Dosage: 114.6 MG, 1XDAY, INTRAVENOUS
     Route: 042
     Dates: start: 20080124, end: 20080126
  3. GEMTUZUMAB OZOGAMICIN (GEMTUZUMAB OZOGAMICIN) [Suspect]
     Indication: ACUTE MYELOID LEUKAEMIA
     Dosage: 11.5 MG, 1X/DAY, INTRAVENOUS
     Route: 042
     Dates: start: 20080127, end: 20080127

REACTIONS (1)
  - CYTOLYTIC HEPATITIS [None]
